FAERS Safety Report 9559125 (Version 4)
Quarter: 2014Q1

REPORT INFORMATION
  Report Type: Report from Study
  Country: BR (occurrence: BR)
  Receive Date: 20130927
  Receipt Date: 20140210
  Transmission Date: 20141002
  Serious: Yes (Hospitalization)
  Sender: FDA-Public Use
  Company Number: BR-ROCHE-1143022

PATIENT
  Age: 59 Year
  Sex: Female
  Weight: 64 kg

DRUGS (19)
  1. MABTHERA [Suspect]
     Indication: RHEUMATOID ARTHRITIS
     Dosage: LAST DOSE OF RITUXIMAB IN 2012
     Route: 042
     Dates: start: 20120315
  2. TRAMADOL [Concomitant]
  3. ALENDRONATE [Concomitant]
  4. FOLIC ACID [Concomitant]
  5. CYCLOBENZAPRINE [Concomitant]
  6. CALCIUM CARBONATE [Concomitant]
  7. PILOCARPINE [Concomitant]
  8. LINSEED OIL [Concomitant]
  9. SOLU-MEDROL [Concomitant]
     Indication: PREMEDICATION
  10. ACETAMINOPHEN [Concomitant]
     Indication: PREMEDICATION
  11. PREDNISONE [Concomitant]
  12. METHOTREXATE [Concomitant]
  13. ARAVA [Concomitant]
  14. HYDROXYCHLOROQUINE [Concomitant]
  15. CYCLOBENZAPRINE [Concomitant]
  16. FENERGAN [Concomitant]
  17. TYLENOL [Concomitant]
  18. HYDROCHLOROTHIAZIDE [Concomitant]
     Indication: HYPERTENSION
     Route: 065
  19. AMLODIPINE [Concomitant]
     Indication: HYPERTENSION
     Route: 065

REACTIONS (4)
  - Cholelithiasis [Recovered/Resolved]
  - Arthralgia [Recovered/Resolved]
  - Skin disorder [Recovered/Resolved]
  - Musculoskeletal stiffness [Not Recovered/Not Resolved]
